FAERS Safety Report 4500788-5 (Version None)
Quarter: 2004Q4

REPORT INFORMATION
  Report Type: 
  Country: None (occurrence: None)
  Receive Date: 20041112
  Receipt Date: 20041112
  Transmission Date: 20050328
  Serious: Yes (Hospitalization)
  Sender: FDA-Public Use
  Company Number: None

PATIENT
  Age: 52 Year
  Sex: Female
  Weight: 71.2147 kg

DRUGS (24)
  1. INDOMETHACIN [Suspect]
     Indication: ARTHRITIS
     Dosage: 75MG 2 PER DAY PO CHRONIC
     Route: 048
  2. INDOMETHACIN [Suspect]
     Indication: BACK PAIN
     Dosage: 75MG 2 PER DAY PO CHRONIC
     Route: 048
  3. ETODOLAC [Suspect]
     Indication: ARTHRITIS
     Dosage: 300 MG 2-3 DAILY PO CHRONIC
     Route: 048
  4. ETODOLAC [Suspect]
     Indication: BACK PAIN
     Dosage: 300 MG 2-3 DAILY PO CHRONIC
     Route: 048
  5. METOPROLOL [Concomitant]
  6. LISINOPRIL [Concomitant]
  7. PLAVIX [Concomitant]
  8. ASPIRIN [Concomitant]
  9. LASIX [Concomitant]
  10. PREVACID [Concomitant]
  11. LORATADINE [Concomitant]
  12. .. [Concomitant]
  13. .. [Concomitant]
  14. METFORMIN HCL [Concomitant]
  15. ADDERALL XR 20 [Concomitant]
  16. PROVIGIL [Concomitant]
  17. DEPAKOTE [Concomitant]
  18. FLUOXETINE [Concomitant]
  19. LIPITOR [Concomitant]
  20. OXAZEPAM [Concomitant]
  21. CALCIUM [Concomitant]
  22. ALBUTEROL [Concomitant]
  23. KCL TAB [Concomitant]
  24. FISH OIL [Concomitant]

REACTIONS (7)
  - ABDOMINAL PAIN [None]
  - DIARRHOEA [None]
  - GASTRITIS [None]
  - HAEMATOCRIT DECREASED [None]
  - LARGE INTESTINAL ULCER [None]
  - OESOPHAGEAL ULCER [None]
  - PEPTIC ULCER [None]
